FAERS Safety Report 25148757 (Version 1)
Quarter: 2025Q2

REPORT INFORMATION
  Report Type: Spontaneous
  Country: BR (occurrence: BR)
  Receive Date: 20250402
  Receipt Date: 20250402
  Transmission Date: 20250717
  Serious: Yes (Hospitalization, Other)
  Sender: GLAND PHARMA
  Company Number: BR-GLANDPHARMA-BR-2025GLNLIT00845

PATIENT
  Age: 38 Year
  Sex: Male

DRUGS (1)
  1. KETAMINE HYDROCHLORIDE [Suspect]
     Active Substance: KETAMINE HYDROCHLORIDE
     Indication: Substance use
     Route: 030

REACTIONS (6)
  - Necrosis [Recovered/Resolved]
  - Sepsis [Recovering/Resolving]
  - Urinary tract disorder [Recovered/Resolved]
  - Hallucination [Unknown]
  - Drug abuse [Unknown]
  - Intentional product misuse [Unknown]
